FAERS Safety Report 8837719 (Version 2)
Quarter: 2012Q4

REPORT INFORMATION
  Report Type: 
  Country: US (occurrence: US)
  Receive Date: 20121012
  Receipt Date: 20121231
  Transmission Date: 20130627
  Serious: Yes (Hospitalization)
  Sender: FDA-Public Use
  Company Number: PHEH2012US019452

PATIENT
  Age: 87 Year
  Sex: Male
  Weight: 72.5 kg

DRUGS (2)
  1. GLEEVEC [Suspect]
     Indication: GASTRIC CANCER
     Dosage: 400 mg daily
     Route: 048
     Dates: start: 20120810
  2. GLEEVEC [Suspect]
     Dosage: 200 mg, UNK

REACTIONS (5)
  - Volume blood decreased [Unknown]
  - Pneumonia [Recovered/Resolved]
  - Anaemia [Recovered/Resolved]
  - Nausea [Unknown]
  - Vomiting [Unknown]
